FAERS Safety Report 25192295 (Version 2)
Quarter: 2025Q2

REPORT INFORMATION
  Report Type: Spontaneous
  Country: DE (occurrence: DE)
  Receive Date: 20250414
  Receipt Date: 20250508
  Transmission Date: 20250717
  Serious: Yes (Other)
  Sender: SANDOZ
  Company Number: DE-ABBVIE-6189050

PATIENT
  Age: 48 Year
  Sex: Female

DRUGS (4)
  1. ADALIMUMAB [Suspect]
     Active Substance: ADALIMUMAB
     Route: 058
     Dates: start: 202309
  2. ADALIMUMAB [Suspect]
     Active Substance: ADALIMUMAB
     Indication: Crohn^s disease
     Route: 058
     Dates: end: 2020
  3. HUMIRA [Suspect]
     Active Substance: ADALIMUMAB
     Route: 058
     Dates: start: 202309
  4. HUMIRA [Suspect]
     Active Substance: ADALIMUMAB
     Indication: Crohn^s disease
     Route: 058
     Dates: end: 2020

REACTIONS (12)
  - Rectal stenosis [Unknown]
  - Abscess [Unknown]
  - Lipase increased [Recovered/Resolved]
  - Stress [Unknown]
  - C-reactive protein increased [Recovered/Resolved]
  - Platelet count increased [Recovered/Resolved]
  - Faecal calprotectin increased [Unknown]
  - Activated partial thromboplastin time ratio increased [Unknown]
  - Blood lactate dehydrogenase increased [Unknown]
  - Alanine aminotransferase increased [Recovered/Resolved]
  - Crohn^s disease [Unknown]
  - Therapeutic product effect incomplete [Unknown]

NARRATIVE: CASE EVENT DATE: 20230701
